FAERS Safety Report 12771285 (Version 1)
Quarter: 2016Q3

REPORT INFORMATION
  Report Type: Spontaneous
  Country: US (occurrence: US)
  Receive Date: 20160919
  Receipt Date: 20160919
  Transmission Date: 20161109
  Serious: No
  Sender: FDA-Public Use
  Company Number: None

PATIENT
  Age: 58 Year
  Sex: Female

DRUGS (1)
  1. SOVALDI [Suspect]
     Active Substance: SOFOSBUVIR
     Dates: start: 20160901

REACTIONS (2)
  - Diarrhoea [None]
  - Rheumatoid arthritis [None]

NARRATIVE: CASE EVENT DATE: 20160919
